FAERS Safety Report 24744456 (Version 2)
Quarter: 2025Q3

REPORT INFORMATION
  Report Type: Spontaneous
  Country: CN (occurrence: CN)
  Receive Date: 20241217
  Receipt Date: 20250802
  Transmission Date: 20251021
  Serious: Yes (Hospitalization, Other)
  Sender: ALEXION PHARMACEUTICALS
  Company Number: CN-ASTRAZENECA-202412CHN008819CN

PATIENT
  Age: 50 Year
  Sex: Male
  Weight: 65 kg

DRUGS (2)
  1. BRILINTA [Suspect]
     Active Substance: TICAGRELOR
     Indication: Platelet aggregation abnormal
     Dosage: 90 MILLIGRAM, BID
     Dates: start: 20241112, end: 20241205
  2. ASPIRIN [Suspect]
     Active Substance: ASPIRIN
     Indication: Platelet aggregation abnormal
     Dosage: 100 MILLIGRAM, QD
     Dates: start: 20241112, end: 20241205

REACTIONS (3)
  - Melaena [Recovering/Resolving]
  - Syncope [Unknown]
  - Abdominal pain [Unknown]
